FAERS Safety Report 7428804-1 (Version None)
Quarter: 2011Q2

REPORT INFORMATION
  Report Type: 
  Country: None (occurrence: None)
  Receive Date: 20110421
  Receipt Date: 20110407
  Transmission Date: 20111010
  Serious: Yes (Hospitalization)
  Sender: FDA-Public Use
  Company Number: US-JNJFOC-20110200097

PATIENT
  Sex: Female
  Weight: 51.3 kg

DRUGS (5)
  1. PREDNISONE [Concomitant]
  2. INFLIXIMAB, RECOMBINANT [Suspect]
     Route: 042
  3. INFLIXIMAB, RECOMBINANT [Suspect]
     Indication: COLITIS ULCERATIVE
     Route: 042
  4. INFLIXIMAB, RECOMBINANT [Suspect]
     Route: 042
  5. TACROLIMUS [Concomitant]

REACTIONS (1)
  - COLITIS ULCERATIVE [None]
